FAERS Safety Report 5199905-6 (Version None)
Quarter: 2007Q1

REPORT INFORMATION
  Report Type: 
  Country: None (occurrence: None)
  Receive Date: 20070103
  Receipt Date: 20061219
  Transmission Date: 20070707
  Serious: Yes (Hospitalization)
  Sender: FDA-Public Use
  Company Number: GXKR2006US08304

PATIENT
  Age: 64 Year
  Sex: Male

DRUGS (4)
  1. LAMOTRIGINE [Suspect]
     Dosage: UNK, UNK, UNKNOWN
  2. CITALOPRAM HYDROBROMIDE [Suspect]
     Dosage: UNK, UNK, UNKNOWN
  3. CLONAZEPAM [Concomitant]
  4. ARIPIPRAZOLE (ARPIPRAZOLE) [Concomitant]

REACTIONS (8)
  - BLOOD PRESSURE DIASTOLIC DECREASED [None]
  - BRUGADA SYNDROME [None]
  - GENERAL PHYSICAL HEALTH DETERIORATION [None]
  - INTENTIONAL OVERDOSE [None]
  - LOSS OF CONSCIOUSNESS [None]
  - MULTIPLE DRUG OVERDOSE INTENTIONAL [None]
  - RENAL FAILURE [None]
  - RESPIRATORY DISTRESS [None]
